FAERS Safety Report 9270941 (Version 2)
Quarter: 2013Q2

REPORT INFORMATION
  Report Type: Report from Study
  Country: DZ (occurrence: DZ)
  Receive Date: 20130506
  Receipt Date: 20130520
  Transmission Date: 20140414
  Serious: Yes (Death)
  Sender: FDA-Public Use
  Company Number: DZ-ROCHE-1221313

PATIENT
  Age: 44 Year
  Sex: Female

DRUGS (4)
  1. TRASTUZUMAB [Suspect]
     Indication: BREAST CANCER
     Route: 065
     Dates: start: 20101111, end: 20110728
  2. NAVELBINE [Suspect]
     Indication: BREAST CANCER
     Route: 065
  3. LAPATINIB [Suspect]
     Indication: BREAST CANCER
     Route: 065
  4. ZOMETA [Suspect]
     Indication: BREAST CANCER
     Route: 065

REACTIONS (1)
  - Disease progression [Fatal]
